FAERS Safety Report 4837498-0 (Version None)
Quarter: 2005Q4

REPORT INFORMATION
  Report Type: 
  Country: None (occurrence: None)
  Receive Date: 20051128
  Receipt Date: 20051108
  Transmission Date: 20060501
  Serious: Yes (Disabling)
  Sender: FDA-Public Use
  Company Number: BE-GLAXOSMITHKLINE-B0400344A

PATIENT
  Age: 50 Year
  Sex: Male
  Weight: 114 kg

DRUGS (6)
  1. AVANDIA [Suspect]
     Indication: DIABETES MELLITUS NON-INSULIN-DEPENDENT
     Dosage: 4MG TWICE PER DAY
     Route: 048
     Dates: start: 20050201, end: 20050617
  2. CARDIOVASCULAR DRUGS [Concomitant]
  3. ISOTEN [Concomitant]
     Indication: CARDIAC DISORDER
     Dosage: 2.5MG PER DAY
     Route: 048
  4. COVERSYL [Concomitant]
     Indication: CARDIAC DISORDER
  5. ALDACTONE [Concomitant]
     Indication: CARDIOMYOPATHY
     Dosage: 25MG PER DAY
  6. CARDIO-ASPIRINE [Concomitant]
     Indication: CARDIOMYOPATHY
     Dosage: 100MG PER DAY

REACTIONS (6)
  - ASTHENIA [None]
  - CARDIAC FAILURE [None]
  - DYSPNOEA EXACERBATED [None]
  - OEDEMA [None]
  - OVERDOSE [None]
  - PANCYTOPENIA [None]
